FAERS Safety Report 6359231-6 (Version None)
Quarter: 2009Q3

REPORT INFORMATION
  Report Type: 
  Country: None (occurrence: None)
  Receive Date: 20090917
  Receipt Date: 20090908
  Transmission Date: 20100115
  Serious: Yes (Other)
  Sender: FDA-Public Use
  Company Number: PHEH2006US02048

PATIENT

DRUGS (1)
  1. ZOMETA [Suspect]
     Dosage: UNK

REACTIONS (11)
  - ABDOMINAL DISTENSION [None]
  - ARTHRALGIA [None]
  - BACK PAIN [None]
  - FLATULENCE [None]
  - GROIN PAIN [None]
  - HERNIA [None]
  - NASAL CONGESTION [None]
  - NERVOUSNESS [None]
  - OEDEMA PERIPHERAL [None]
  - OSTEONECROSIS [None]
  - RHINORRHOEA [None]
